FAERS Safety Report 11892499 (Version 1)
Quarter: 2016Q1

REPORT INFORMATION
  Report Type: Spontaneous
  Country: US (occurrence: US)
  Receive Date: 20160106
  Receipt Date: 20160106
  Transmission Date: 20160526
  Serious: No
  Sender: FDA-Public Use
  Company Number: US-JNJFOC-20151208019

PATIENT
  Age: 45 Year
  Sex: Male
  Weight: 83.46 kg

DRUGS (1)
  1. NIZORAL A-D [Suspect]
     Active Substance: KETOCONAZOLE
     Indication: PROPHYLAXIS
     Dosage: EVERY 4 DAYS
     Route: 061
     Dates: start: 20150908

REACTIONS (2)
  - Intentional product misuse [Unknown]
  - Drug ineffective [Unknown]
